FAERS Safety Report 5118733-0 (Version None)
Quarter: 2006Q3

REPORT INFORMATION
  Report Type: 
  Country: None (occurrence: None)
  Receive Date: 20060927
  Receipt Date: 20060915
  Transmission Date: 20061208
  Serious: Yes (Hospitalization)
  Sender: FDA-Public Use
  Company Number: 2006113794

PATIENT
  Age: 46 Year
  Sex: Male
  Weight: 67 kg

DRUGS (2)
  1. SUTENT [Suspect]
     Indication: NEOPLASM MALIGNANT
     Dosage: 26 MG (26 MG, ONCE DAILY - 2 WEEKS ON/ 1 WEEKS OFF),ORAL
     Route: 048
     Dates: start: 20060913
  2. IRINOTECAN HYDROCHLORIDE SOLUTION, STERILE (ININOTECAN HYDROCHLORIDE) [Suspect]
     Indication: NEOPLASM MALIGNANT
     Dosage: 230 MG (125 MG/M2, 1 IN 3 WK), INTRAVENOUS
     Route: 042
     Dates: start: 20060913

REACTIONS (2)
  - HEART RATE IRREGULAR [None]
  - PALPITATIONS [None]
